FAERS Safety Report 25191492 (Version 1)
Quarter: 2025Q2

REPORT INFORMATION
  Report Type: Spontaneous
  Country: US (occurrence: None)
  Receive Date: 20250412
  Receipt Date: 20250412
  Transmission Date: 20250717
  Serious: No
  Sender: FDA-CTU
  Company Number: None

PATIENT
  Age: 52 Year
  Sex: Female
  Weight: 69.75 kg

DRUGS (9)
  1. ZEPBOUND [Suspect]
     Active Substance: TIRZEPATIDE
     Indication: Obesity
     Dosage: OTHER FREQUENCY : WEEKLY;?
     Route: 058
     Dates: start: 20250411
  2. BUPROPION [Concomitant]
     Active Substance: BUPROPION
  3. TOPIRAMATE [Concomitant]
     Active Substance: TOPIRAMATE
  4. lisdexamferamine [Concomitant]
  5. ZEPBOUND [Concomitant]
     Active Substance: TIRZEPATIDE
  6. PROGESTERONE [Concomitant]
     Active Substance: PROGESTERONE
  7. ESTRADIOL [Concomitant]
     Active Substance: ESTRADIOL
  8. VITAMINS [Concomitant]
     Active Substance: VITAMINS
  9. nightly melatonin [Concomitant]

REACTIONS (2)
  - Myalgia [None]
  - Myalgia [None]

NARRATIVE: CASE EVENT DATE: 20250412
